FAERS Safety Report 8198589-2 (Version None)
Quarter: 2012Q1

REPORT INFORMATION
  Report Type: 
  Country: None (occurrence: None)
  Receive Date: 20120309
  Receipt Date: 20111202
  Transmission Date: 20120608
  Serious: No
  Sender: FDA-Public Use
  Company Number: US-AMGEN-USASP2011028835

PATIENT
  Age: 63 Year
  Sex: Female

DRUGS (32)
  1. ENBREL [Suspect]
     Indication: RHEUMATOID ARTHRITIS
     Dosage: 25 MG, 2 TIMES/WK
     Dates: start: 20020101
  2. LIPITOR [Concomitant]
  3. VITAMIN D [Concomitant]
  4. VITAMIN E                          /00110501/ [Concomitant]
  5. PLAVIX [Concomitant]
     Dosage: UNK
  6. METHOTREXATE [Concomitant]
     Dosage: UNK MG, UNK
  7. DURAGESIC-100 [Concomitant]
     Dosage: UNK
  8. FOLIC ACID [Concomitant]
  9. FLOVENT [Concomitant]
     Dosage: UNK
  10. HYDROCHLOROTHIAZIDE [Concomitant]
  11. PROAIR HFA [Concomitant]
  12. TRAZODONE HCL [Concomitant]
     Dosage: 2 MG, UNK
  13. CELEBREX [Concomitant]
     Dosage: UNK
  14. PREDNISONE [Concomitant]
  15. SPIRIVA [Concomitant]
     Dosage: UNK
  16. LIPITOR [Concomitant]
     Dosage: UNK
  17. PREDNISONE [Concomitant]
     Dosage: UNK
  18. CELEBREX [Concomitant]
  19. HYDROCHLOROTHIAZIDE [Concomitant]
     Dosage: UNK
  20. ASPIRIN [Concomitant]
  21. SPIRIVA [Concomitant]
  22. ALBUTEROL [Concomitant]
  23. CALCIUM [Concomitant]
  24. METHOTREXATE [Concomitant]
  25. FOLIC ACID [Concomitant]
     Dosage: UNK
  26. PROLIA [Suspect]
     Indication: OSTEOPOROSIS POSTMENOPAUSAL
     Dosage: 60 MG, Q6MO
     Dates: start: 20110512
  27. TRAZODONE HCL [Concomitant]
     Dosage: 2 MG, QD
  28. VIVELLE [Concomitant]
     Dosage: UNK
  29. ACYCLOVIR [Concomitant]
     Dosage: UNK
  30. PLAVIX [Concomitant]
     Dosage: UNK
  31. ASPIRIN [Concomitant]
     Dosage: UNK
  32. ESTROPIPATE [Concomitant]
     Dosage: UNK

REACTIONS (11)
  - BLISTER [None]
  - FEELING HOT [None]
  - GAIT DISTURBANCE [None]
  - ERYTHEMA [None]
  - PAIN IN EXTREMITY [None]
  - STOMATITIS [None]
  - DERMATITIS [None]
  - BONE PAIN [None]
  - RASH [None]
  - MYALGIA [None]
  - ARTHRALGIA [None]
